FAERS Safety Report 20677926 (Version 1)
Quarter: 2022Q2

REPORT INFORMATION
  Report Type: Spontaneous
  Country: JP (occurrence: JP)
  Receive Date: 20220406
  Receipt Date: 20220406
  Transmission Date: 20220720
  Serious: Yes (Other)
  Sender: FDA-Public Use
  Company Number: JP-CHUGAI-2022010031

PATIENT
  Sex: Female
  Weight: 2.095 kg

DRUGS (2)
  1. MIRCERA [Suspect]
     Active Substance: METHOXY POLYETHYLENE GLYCOL-EPOETIN BETA
     Indication: Haemolytic anaemia
     Route: 065
  2. IRON [Concomitant]
     Active Substance: IRON

REACTIONS (2)
  - Haemolytic anaemia [Recovering/Resolving]
  - Off label use [Unknown]
